FAERS Safety Report 13690414 (Version 1)
Quarter: 2017Q2

REPORT INFORMATION
  Report Type: Spontaneous
  Country: US (occurrence: US)
  Receive Date: 20170626
  Receipt Date: 20170626
  Transmission Date: 20170830
  Serious: No
  Sender: FDA-Public Use
  Company Number: US-BAYER-2017-118297

PATIENT
  Age: 85 Year
  Sex: Male

DRUGS (3)
  1. BISACODYL. [Concomitant]
     Active Substance: BISACODYL
  2. ALEVE PM [Suspect]
     Active Substance: DIPHENHYDRAMINE HYDROCHLORIDE\NAPROXEN SODIUM
     Indication: PAIN
     Dosage: UNK
     Route: 065
     Dates: start: 201706
  3. TRAMADOL. [Concomitant]
     Active Substance: TRAMADOL

REACTIONS (3)
  - Feeling of relaxation [Unknown]
  - Drug ineffective [Unknown]
  - Terminal insomnia [Unknown]
